FAERS Safety Report 12842525 (Version 1)
Quarter: 2016Q4

REPORT INFORMATION
  Report Type: Spontaneous
  Country: FR (occurrence: FR)
  Receive Date: 20161013
  Receipt Date: 20161013
  Transmission Date: 20170207
  Serious: Yes (Life-Threatening, Hospitalization)
  Sender: FDA-Public Use
  Company Number: FR-BAUSCH-BL-2016-024907

PATIENT
  Age: 79 Year
  Sex: Male

DRUGS (2)
  1. CEFEPIME [Suspect]
     Active Substance: CEFEPIME HYDROCHLORIDE
     Indication: SEPSIS
  2. OFLOXACIN. [Suspect]
     Active Substance: OFLOXACIN
     Indication: SEPSIS
     Route: 065

REACTIONS (1)
  - Drug ineffective [Unknown]
